FAERS Safety Report 15147984 (Version 4)
Quarter: 2019Q3

REPORT INFORMATION
  Report Type: Spontaneous
  Country: GB (occurrence: GB)
  Receive Date: 20180716
  Receipt Date: 20190805
  Transmission Date: 20191004
  Serious: Yes (Other)
  Sender: FDA-Public Use
  Company Number: PHHY2016GB187016

PATIENT
  Age: 60 Year
  Sex: Female

DRUGS (42)
  1. HYDROCORTISONE. [Concomitant]
     Active Substance: HYDROCORTISONE
     Indication: PRODUCT USED FOR UNKNOWN INDICATION
     Dosage: UNK
     Route: 061
  2. BEPANTHEN [Concomitant]
     Dosage: UNK
     Route: 065
     Dates: start: 20160913, end: 20160914
  3. PEPTAC [Concomitant]
     Active Substance: RANITIDINE HYDROCHLORIDE
     Indication: PRODUCT USED FOR UNKNOWN INDICATION
     Dosage: 10 ML, UNK
     Route: 048
  4. PACLITAXEL. [Suspect]
     Active Substance: PACLITAXEL
     Indication: HER-2 POSITIVE BREAST CANCER
     Dosage: 141 MG, WEEKLY, TAXOL
     Route: 042
     Dates: start: 20150901, end: 20151006
  5. OMEPRAZOLE. [Concomitant]
     Active Substance: OMEPRAZOLE
     Indication: PRODUCT USED FOR UNKNOWN INDICATION
     Dosage: 20 MG, DAILY
     Route: 048
     Dates: end: 20160106
  6. DEXAMETHASONE. [Concomitant]
     Active Substance: DEXAMETHASONE
     Indication: PRODUCT USED FOR UNKNOWN INDICATION
     Dosage: 8 MG, QW
     Route: 042
     Dates: start: 20160823, end: 20160906
  7. CHLORHEXIDINE GLUCONATE. [Concomitant]
     Active Substance: CHLORHEXIDINE GLUCONATE
     Indication: PRODUCT USED FOR UNKNOWN INDICATION
     Dosage: 20 ML, QD
     Route: 065
     Dates: start: 20160913, end: 20160925
  8. HYDROCORTISONE. [Concomitant]
     Active Substance: HYDROCORTISONE
     Indication: PRODUCT USED FOR UNKNOWN INDICATION
     Dosage: 100 MG, QW
     Route: 042
     Dates: start: 20160906, end: 20160906
  9. EPIRUBICIN [Suspect]
     Active Substance: EPIRUBICIN
     Indication: HER-2 POSITIVE BREAST CANCER
     Dosage: 50 MG, QW
     Route: 042
     Dates: start: 20160823, end: 20160830
  10. TRASTUZUMAB. [Suspect]
     Active Substance: TRASTUZUMAB
     Indication: HER-2 POSITIVE BREAST CANCER
     Dosage: 600 MG, Q3W
     Route: 058
     Dates: start: 20151124, end: 20160823
  11. CO-AMOXICLAV [Concomitant]
     Active Substance: AMOXICILLIN\CLAVULANATE POTASSIUM
     Indication: PRODUCT USED FOR UNKNOWN INDICATION
     Dosage: 3 OT, QD (500/125 MG, DAILY)
     Route: 048
     Dates: start: 20150922, end: 20151004
  12. METOCLOPRAMIDE. [Concomitant]
     Active Substance: METOCLOPRAMIDE
     Dosage: 10 MG, UNK
     Route: 048
     Dates: start: 20160823, end: 20160906
  13. VANCOMYCIN [Concomitant]
     Active Substance: VANCOMYCIN
     Indication: NEUTROPENIA
     Dosage: 1500 MG, UNK
     Route: 042
  14. VANCOMYCIN [Concomitant]
     Active Substance: VANCOMYCIN
     Dosage: 1500 MG, UNK
     Route: 042
     Dates: start: 20160912, end: 20160912
  15. ONDANSETRON [Concomitant]
     Active Substance: ONDANSETRON
     Indication: PRODUCT USED FOR UNKNOWN INDICATION
     Dosage: 8 MG, UNK
     Route: 048
     Dates: start: 20151006, end: 20151215
  16. ONDANSETRON [Concomitant]
     Active Substance: ONDANSETRON
     Dosage: 8 MG, QW
     Route: 048
     Dates: start: 20160823, end: 20160906
  17. ENALAPRIL [Concomitant]
     Active Substance: ENALAPRIL
     Indication: PRODUCT USED FOR UNKNOWN INDICATION
     Dosage: 10 MG, DAILY
     Route: 048
     Dates: start: 20060823, end: 20160925
  18. METOCLOPRAMIDE. [Concomitant]
     Active Substance: METOCLOPRAMIDE
     Indication: PRODUCT USED FOR UNKNOWN INDICATION
     Dosage: 10 MG, UNK
     Route: 048
  19. VANCOMYCIN [Concomitant]
     Active Substance: VANCOMYCIN
     Dosage: UNK
     Route: 042
  20. PACLITAXEL. [Suspect]
     Active Substance: PACLITAXEL
     Dosage: 111 MG, QW (WEEKLY)
     Route: 042
     Dates: start: 20151006, end: 20151215
  21. METOCLOPRAMIDE. [Concomitant]
     Active Substance: METOCLOPRAMIDE
     Dosage: 10 MG, UNK
     Route: 048
     Dates: start: 20150908, end: 20151215
  22. ENOXAPARIN [Concomitant]
     Active Substance: ENOXAPARIN
     Dosage: UNK
     Route: 058
     Dates: start: 20160817, end: 20160913
  23. GENTAMYCIN [Concomitant]
     Active Substance: GENTAMICIN
     Indication: PRODUCT USED FOR UNKNOWN INDICATION
     Dosage: UNK
     Route: 042
  24. BEPANTHEN [Concomitant]
     Indication: PRODUCT USED FOR UNKNOWN INDICATION
     Dosage: UNK
     Route: 061
  25. CHLORPHENAMINE [Concomitant]
     Active Substance: CHLORPHENIRAMINE MALEATE
     Indication: PRODUCT USED FOR UNKNOWN INDICATION
     Dosage: 10 MG, QW
     Route: 042
     Dates: start: 20150908, end: 20151215
  26. CHLORPHENAMINE [Concomitant]
     Active Substance: CHLORPHENIRAMINE MALEATE
     Dosage: 10 MG, QW
     Route: 042
     Dates: start: 20160906, end: 20160906
  27. FLUCONAZOLE. [Concomitant]
     Active Substance: FLUCONAZOLE
     Indication: PRODUCT USED FOR UNKNOWN INDICATION
     Dosage: UNK
     Route: 048
  28. FLUCONAZOLE. [Concomitant]
     Active Substance: FLUCONAZOLE
     Dosage: UNK
     Route: 048
     Dates: start: 20160912, end: 20160912
  29. IBUPROFEN. [Concomitant]
     Active Substance: IBUPROFEN
     Indication: PRODUCT USED FOR UNKNOWN INDICATION
     Dosage: UNK
     Route: 065
  30. RANITIDINE. [Concomitant]
     Active Substance: RANITIDINE
     Dosage: 50 MG, UNK
     Route: 042
     Dates: start: 20150908, end: 20151215
  31. PARACETAMOL [Concomitant]
     Active Substance: ACETAMINOPHEN
     Indication: PRODUCT USED FOR UNKNOWN INDICATION
     Dosage: 2000 MG, QD
     Route: 048
     Dates: end: 20160925
  32. ENOXAPARIN [Concomitant]
     Active Substance: ENOXAPARIN
     Indication: PRODUCT USED FOR UNKNOWN INDICATION
     Dosage: UNK
     Route: 058
  33. VANCOMYCIN [Concomitant]
     Active Substance: VANCOMYCIN
     Dosage: UNK
     Route: 042
     Dates: start: 20160912, end: 20160913
  34. DEXAMETHASONE. [Concomitant]
     Active Substance: DEXAMETHASONE
     Dosage: 8 MG, QW
     Route: 042
     Dates: start: 20150908, end: 20151215
  35. TAZOCIN [Concomitant]
     Active Substance: PIPERACILLIN SODIUM\TAZOBACTAM SODIUM
     Indication: NEUTROPENIA
     Dosage: 18 G, QD
     Route: 042
     Dates: start: 20160911, end: 20160913
  36. PACLITAXEL. [Suspect]
     Active Substance: PACLITAXEL
     Dosage: 84 MG, QW, TAXOL
     Route: 042
     Dates: start: 20160906, end: 20160906
  37. RANITIDINE. [Concomitant]
     Active Substance: RANITIDINE
     Indication: PRODUCT USED FOR UNKNOWN INDICATION
     Dosage: 50 MG, QW
     Route: 042
     Dates: start: 20160906, end: 20160906
  38. HYDROCORTISONE. [Concomitant]
     Active Substance: HYDROCORTISONE
     Dosage: UNK
     Route: 061
     Dates: start: 20160817, end: 20160913
  39. ACICLOVIR [Concomitant]
     Active Substance: ACYCLOVIR
     Indication: PRODUCT USED FOR UNKNOWN INDICATION
     Dosage: 25 %, QD
     Route: 061
     Dates: start: 20160913, end: 20160925
  40. GENTAMYCIN [Concomitant]
     Active Substance: GENTAMICIN
     Dosage: UNK
     Route: 042
     Dates: start: 20160825, end: 20160827
  41. FLUCONAZOLE. [Concomitant]
     Active Substance: FLUCONAZOLE
     Dosage: UNK UNK, QD
     Route: 048
     Dates: start: 20160908, end: 201609
  42. PEPTAC [Concomitant]
     Active Substance: RANITIDINE HYDROCHLORIDE
     Dosage: 10 ML, UNK
     Route: 048
     Dates: start: 20160106

REACTIONS (10)
  - Nail infection [Recovered/Resolved]
  - Ascites [Recovered/Resolved with Sequelae]
  - Neuropathy peripheral [Recovered/Resolved]
  - White blood cell count decreased [Recovered/Resolved]
  - Epigastric discomfort [Recovered/Resolved]
  - Muscle strain [Recovered/Resolved]
  - Aspartate aminotransferase increased [Recovered/Resolved with Sequelae]
  - Blood bilirubin increased [Recovered/Resolved]
  - Blood alkaline phosphatase increased [Not Recovered/Not Resolved]
  - Diarrhoea [Recovered/Resolved]

NARRATIVE: CASE EVENT DATE: 20160121
